FAERS Safety Report 13134690 (Version 1)
Quarter: 2017Q1

REPORT INFORMATION
  Report Type: Spontaneous
  Country: US (occurrence: US)
  Receive Date: 20170120
  Receipt Date: 20170120
  Transmission Date: 20170428
  Serious: Yes (Life-Threatening)
  Sender: FDA-Public Use
  Company Number: US-JNJFOC-20170118173

PATIENT
  Age: 27 Year
  Sex: Female

DRUGS (1)
  1. REMICADE [Suspect]
     Active Substance: INFLIXIMAB
     Indication: PRODUCT USED FOR UNKNOWN INDICATION
     Route: 042
     Dates: start: 2016

REACTIONS (1)
  - Adverse event [Recovering/Resolving]

NARRATIVE: CASE EVENT DATE: 201612
